FAERS Safety Report 9475377 (Version 1)
Quarter: 2013Q3

REPORT INFORMATION
  Report Type: Spontaneous
  Country: US (occurrence: US)
  Receive Date: 20130826
  Receipt Date: 20130826
  Transmission Date: 20140515
  Serious: No
  Sender: FDA-Public Use
  Company Number: US-BIOGENIDEC-2013BI071358

PATIENT
  Sex: Female

DRUGS (4)
  1. AVONEX [Suspect]
     Indication: MULTIPLE SCLEROSIS
     Route: 030
     Dates: start: 201109, end: 201212
  2. AVONEX [Suspect]
     Indication: MULTIPLE SCLEROSIS
     Route: 030
     Dates: start: 201212, end: 201307
  3. AMPYRA [Concomitant]
     Route: 048
     Dates: start: 20100422
  4. TECFIDERA [Concomitant]

REACTIONS (6)
  - Balance disorder [Unknown]
  - Arthropathy [Unknown]
  - Urinary incontinence [Unknown]
  - Pain [Unknown]
  - Influenza like illness [Unknown]
  - Headache [Unknown]
